FAERS Safety Report 17248438 (Version 4)
Quarter: 2020Q1

REPORT INFORMATION
  Report Type: Report from Study
  Country: GT (occurrence: GT)
  Receive Date: 20200108
  Receipt Date: 20200214
  Transmission Date: 20200409
  Serious: Yes (Other)
  Sender: FDA-Public Use
  Company Number: NVSC2020GT002698

PATIENT
  Age: 69 Year
  Sex: Female
  Weight: 78.92 kg

DRUGS (3)
  1. CO-DIOVAN [Suspect]
     Active Substance: HYDROCHLOROTHIAZIDE\VALSARTAN
     Indication: HYPERTENSION
     Dosage: 1 DF, (320/12.5 MG) QD
     Route: 065
     Dates: start: 1995
  2. EUTIROX [Concomitant]
     Active Substance: LEVOTHYROXINE SODIUM
     Indication: THYROID DISORDER
     Dosage: 1 DF, (100 MG) QD
     Route: 065
     Dates: start: 1990
  3. ATLANSIL [Concomitant]
     Active Substance: AMIODARONE
     Indication: CARDIAC DISORDER
     Dosage: 1 DF, (200 MG) QD
     Route: 065
     Dates: start: 1989

REACTIONS (3)
  - Pollakiuria [Unknown]
  - Diabetes mellitus [Recovering/Resolving]
  - Thirst [Unknown]

NARRATIVE: CASE EVENT DATE: 1998
